FAERS Safety Report 5794859-3 (Version None)
Quarter: 2008Q2

REPORT INFORMATION
  Report Type: 
  Country: None (occurrence: None)
  Receive Date: 20080627
  Receipt Date: 20080627
  Transmission Date: 20081010
  Serious: No
  Sender: FDA-Public Use
  Company Number: None

PATIENT

DRUGS (1)
  1. VERAPAMIL [Suspect]

REACTIONS (17)
  - ANOREXIA [None]
  - BLOOD POTASSIUM DECREASED [None]
  - BLOOD PRESSURE DECREASED [None]
  - DISORIENTATION [None]
  - GENERAL PHYSICAL HEALTH DETERIORATION [None]
  - HEART RATE DECREASED [None]
  - INCOHERENT [None]
  - NAUSEA [None]
  - NEPHROLITHIASIS [None]
  - NERVOUSNESS [None]
  - NO THERAPEUTIC RESPONSE [None]
  - PANCREATIC DISORDER [None]
  - RENAL FAILURE [None]
  - SHOCK [None]
  - THERAPEUTIC PRODUCT CONTAMINATION [None]
  - TREMOR [None]
  - WEIGHT DECREASED [None]
